FAERS Safety Report 22152745 (Version 1)
Quarter: 2023Q1

REPORT INFORMATION
  Report Type: Spontaneous
  Country: US (occurrence: None)
  Receive Date: 20230329
  Receipt Date: 20230329
  Transmission Date: 20230418
  Serious: No
  Sender: FDA-Public Use
  Company Number: None

PATIENT
  Age: 47 Year
  Sex: Female

DRUGS (5)
  1. HUMIRA [Suspect]
     Active Substance: ADALIMUMAB
     Indication: Colitis ulcerative
     Dosage: OTHER FREQUENCY : EVERY OTHER WEEK;?
     Route: 058
     Dates: start: 20221116, end: 20230328
  2. AZATHIOPRINE [Concomitant]
     Active Substance: AZATHIOPRINE
  3. BUDESONIDE [Concomitant]
     Active Substance: BUDESONIDE
  4. FOLIC ACID [Concomitant]
     Active Substance: FOLIC ACID
  5. ACETAMINOPHEN [Concomitant]
     Active Substance: ACETAMINOPHEN

REACTIONS (2)
  - Lupus-like syndrome [None]
  - Therapy cessation [None]

NARRATIVE: CASE EVENT DATE: 20230328
